FAERS Safety Report 12631793 (Version 3)
Quarter: 2016Q3

REPORT INFORMATION
  Report Type: Spontaneous
  Country: US (occurrence: US)
  Receive Date: 20160808
  Receipt Date: 20160808
  Transmission Date: 20161109
  Serious: No
  Sender: FDA-Public Use
  Company Number: US-BEH-2016061059

PATIENT
  Sex: Male
  Weight: 74 kg

DRUGS (12)
  1. PROBIOTIC [Concomitant]
     Active Substance: PROBIOTICS NOS
  2. MAGNESIUM [Concomitant]
     Active Substance: MAGNESIUM
  3. LMX [Concomitant]
     Active Substance: LIDOCAINE
  4. VITAMIN B [Concomitant]
     Active Substance: VITAMIN B
  5. EPIPEN [Concomitant]
     Active Substance: EPINEPHRINE
  6. CELECOXIB. [Concomitant]
     Active Substance: CELECOXIB
  7. IBUPROFEN. [Concomitant]
     Active Substance: IBUPROFEN
  8. DIPHENHYDRAMINE. [Concomitant]
     Active Substance: DIPHENHYDRAMINE
  9. TYLENOL [Concomitant]
     Active Substance: ACETAMINOPHEN
  10. GABAPENTIN. [Concomitant]
     Active Substance: GABAPENTIN
  11. HIZENTRA [Suspect]
     Active Substance: HUMAN IMMUNOGLOBULIN G
     Indication: IMMUNODEFICIENCY COMMON VARIABLE
     Route: 058
     Dates: start: 20131121
  12. AMOXICILLIN. [Concomitant]
     Active Substance: AMOXICILLIN

REACTIONS (1)
  - Infusion site swelling [Unknown]
